FAERS Safety Report 7631297-2 (Version None)
Quarter: 2011Q3

REPORT INFORMATION
  Report Type: 
  Country: None (occurrence: None)
  Receive Date: 20110718
  Receipt Date: 20110712
  Transmission Date: 20111222
  Serious: Yes (Hospitalization)
  Sender: FDA-Public Use
  Company Number: 1000022108

PATIENT
  Age: 68 Year
  Sex: Male

DRUGS (5)
  1. DALIRESP [Suspect]
     Indication: CHRONIC OBSTRUCTIVE PULMONARY DISEASE
     Dosage: (500 MNA. 1 IN 1 D).ORAL
     Route: 048
     Dates: start: 20110701, end: 20110701
  2. FLOVENT (FLUTICASONE PROPIONATE)(FLUTICASONE PROPIONATE) [Concomitant]
  3. POTASSIUM (POTASSIUM)(POTASSIUM) [Concomitant]
  4. LASIX [Concomitant]
  5. PROCARDIA (NIFEDIPINE) (NIFEDIPINE) [Concomitant]

REACTIONS (2)
  - CONDITION AGGRAVATED [None]
  - CHRONIC OBSTRUCTIVE PULMONARY DISEASE [None]
